FAERS Safety Report 9456672 (Version 1)
Quarter: 2013Q3

REPORT INFORMATION
  Report Type: Spontaneous
  Country: BR (occurrence: BR)
  Receive Date: 20130813
  Receipt Date: 20130813
  Transmission Date: 20140515
  Serious: Yes (Other)
  Sender: FDA-Public Use
  Company Number: BR-PFIZER INC-2013232505

PATIENT
  Sex: Female

DRUGS (1)
  1. EFEXOR XR [Suspect]
     Dosage: 75 MG, UNK

REACTIONS (8)
  - Blood pressure decreased [Unknown]
  - Syncope [Unknown]
  - Bedridden [Unknown]
  - Visual impairment [Unknown]
  - Muscular weakness [Unknown]
  - Tremor [Unknown]
  - Nausea [Unknown]
  - Decreased appetite [Unknown]
